FAERS Safety Report 8992312 (Version 2)
Quarter: 2013Q1

REPORT INFORMATION
  Report Type: Spontaneous
  Country: US (occurrence: US)
  Receive Date: 20121231
  Receipt Date: 20130312
  Transmission Date: 20140127
  Serious: No
  Sender: FDA-Public Use
  Company Number: US-B.I. PHARMACEUTICALS,INC./RIDGEFIELD-2012-BI-03519BP

PATIENT
  Sex: Female

DRUGS (19)
  1. SPIRIVA [Suspect]
     Indication: CHRONIC OBSTRUCTIVE PULMONARY DISEASE
     Dosage: 18 MCG
     Route: 055
     Dates: start: 20120813, end: 20121226
  2. SPIRIVA [Suspect]
     Indication: BRONCHIAL HYPERREACTIVITY
  3. ASPIRIN [Concomitant]
     Indication: HYPERTENSION
     Dosage: 325 MG
     Route: 048
  4. ATIVAN [Concomitant]
     Indication: ANXIETY
     Dosage: 1.5 MG
     Route: 048
     Dates: start: 20130121
  5. TRAZA DONE [Concomitant]
     Indication: INSOMNIA
     Dosage: 300 MG
     Route: 048
  6. LASIX [Concomitant]
     Indication: OEDEMA
     Dosage: 20 MG
     Route: 048
  7. TYLENOL [Concomitant]
     Indication: ARTHRITIS
     Dosage: 1000 MG
     Route: 048
  8. AMBIEN [Concomitant]
     Indication: INSOMNIA
     Dosage: 5 MG
     Route: 048
  9. MUCINEX [Concomitant]
     Dosage: 1200 MG
     Route: 048
  10. FLONASE [Concomitant]
     Indication: SEASONAL ALLERGY
     Route: 045
  11. CRANBERRY [Concomitant]
     Indication: URINARY TRACT INFECTION
     Route: 048
  12. PRO-AIR [Concomitant]
     Indication: CHRONIC OBSTRUCTIVE PULMONARY DISEASE
  13. CALCIUM [Concomitant]
     Indication: OSTEOPOROSIS
     Dosage: 600 MG
     Route: 048
  14. PROCARDIS XL [Concomitant]
     Indication: HYPERTENSION
     Dosage: 30 MG
     Route: 048
  15. VASOTEC [Concomitant]
     Indication: HYPERTENSION
     Dosage: 20 MG
     Route: 048
  16. GARLIC [Concomitant]
     Dosage: 500 MG
     Route: 048
  17. ATENOLOL [Concomitant]
     Indication: HYPERTENSION
     Dosage: 50 MG
     Route: 048
     Dates: start: 20120827
  18. LORATADINE [Concomitant]
     Indication: SEASONAL ALLERGY
     Dosage: 10 MG
     Route: 048
  19. VITAMIN C [Concomitant]
     Dosage: 1000 MG
     Route: 048

REACTIONS (2)
  - Dyspnoea [Not Recovered/Not Resolved]
  - Dyspnoea [Recovered/Resolved]
